FAERS Safety Report 10196407 (Version 1)
Quarter: 2014Q2

REPORT INFORMATION
  Report Type: Spontaneous
  Country: US (occurrence: None)
  Receive Date: 20140522
  Receipt Date: 20140522
  Transmission Date: 20141212
  Serious: Yes (Other)
  Sender: FDA-Public Use
  Company Number: 2342169

PATIENT
  Age: 56 Year
  Sex: Female

DRUGS (1)
  1. METHOTREXATE [Suspect]
     Indication: SERONEGATIVE ARTHRITIS
     Dosage: NOT REPORTED, UNKNOWN, UNKNOWN

REACTIONS (7)
  - Seronegative arthritis [None]
  - Odynophagia [None]
  - Skin ulcer [None]
  - Mouth ulceration [None]
  - Pancytopenia [None]
  - Folate deficiency [None]
  - Toxicity to various agents [None]
